FAERS Safety Report 6252845-3 (Version None)
Quarter: 2009Q2

REPORT INFORMATION
  Report Type: 
  Country: None (occurrence: None)
  Receive Date: 20090629
  Receipt Date: 20090629
  Transmission Date: 20091009
  Serious: Yes (Other)
  Sender: FDA-Public Use
  Company Number: None

PATIENT
  Age: 28 Year
  Sex: Female
  Weight: 72.5755 kg

DRUGS (1)
  1. MIRENA [Suspect]
     Indication: CONTRACEPTION
     Dosage: EVERY 5 YEARS INTRA-UTERINE
     Route: 015
     Dates: start: 20080501, end: 20090625

REACTIONS (20)
  - ACNE [None]
  - AMNESIA [None]
  - ARTHRALGIA [None]
  - BREAST TENDERNESS [None]
  - COITAL BLEEDING [None]
  - CONDITION AGGRAVATED [None]
  - DYSPAREUNIA [None]
  - FEELING ABNORMAL [None]
  - HYPOAESTHESIA [None]
  - LIBIDO DECREASED [None]
  - MENSTRUATION IRREGULAR [None]
  - MIGRAINE [None]
  - MUSCLE SPASMS [None]
  - PARANOIA [None]
  - POSTPARTUM DEPRESSION [None]
  - PSYCHOTIC DISORDER [None]
  - SELF ESTEEM DECREASED [None]
  - SOCIAL AVOIDANT BEHAVIOUR [None]
  - SUICIDAL IDEATION [None]
  - WEIGHT INCREASED [None]
